FAERS Safety Report 15305039 (Version 1)
Quarter: 2018Q3

REPORT INFORMATION
  Report Type: Spontaneous
  Country: US (occurrence: US)
  Receive Date: 20180810
  Receipt Date: 20180810
  Transmission Date: 20181010
  Serious: No
  Sender: FDA-Public Use
  Company Number: None

PATIENT
  Age: 64 Year
  Sex: Female

DRUGS (1)
  1. TREMFYA [Suspect]
     Active Substance: GUSELKUMAB
     Dates: start: 20180723, end: 20180809

REACTIONS (10)
  - Sinus disorder [None]
  - Bone pain [None]
  - Nausea [None]
  - Upper-airway cough syndrome [None]
  - Decreased appetite [None]
  - Hot flush [None]
  - Fatigue [None]
  - Abdominal discomfort [None]
  - Hyperhidrosis [None]
  - Sleep disorder [None]

NARRATIVE: CASE EVENT DATE: 20180809
